FAERS Safety Report 23691476 (Version 1)
Quarter: 2024Q2

REPORT INFORMATION
  Report Type: Spontaneous
  Country: ES (occurrence: ES)
  Receive Date: 20240401
  Receipt Date: 20240401
  Transmission Date: 20240715
  Serious: Yes (Life-Threatening, Hospitalization, Other)
  Sender: FDA-Public Use
  Company Number: ES-862174955-ML2024-01981

PATIENT
  Age: 77 Year
  Sex: Female

DRUGS (1)
  1. AMOXICILLIN [Suspect]
     Active Substance: AMOXICILLIN
     Indication: Dental care
     Dosage: 30 MINUTES BEFORE THE DENTAL PROCEDURE

REACTIONS (3)
  - Kounis syndrome [Recovered/Resolved]
  - Stress cardiomyopathy [Recovered/Resolved]
  - Anaphylactic reaction [Recovered/Resolved]
